FAERS Safety Report 14953652 (Version 2)
Quarter: 2018Q2

REPORT INFORMATION
  Report Type: Spontaneous
  Country: JP (occurrence: JP)
  Receive Date: 20180530
  Receipt Date: 20180612
  Transmission Date: 20180711
  Serious: No
  Sender: FDA-Public Use
  Company Number: JP-OTSUKA-2018_013528

PATIENT
  Age: 16 Year
  Sex: Female

DRUGS (1)
  1. ABILIFY [Suspect]
     Active Substance: ARIPIPRAZOLE
     Indication: SCHIZOPHRENIA
     Dosage: 15 MG, QD
     Route: 048

REACTIONS (4)
  - Drug administered to patient of inappropriate age [Unknown]
  - Asthenopia [Not Recovered/Not Resolved]
  - Akathisia [Not Recovered/Not Resolved]
  - Dizziness [Not Recovered/Not Resolved]
